FAERS Safety Report 15387354 (Version 1)
Quarter: 2018Q3

REPORT INFORMATION
  Report Type: Spontaneous
  Country: JP (occurrence: JP)
  Receive Date: 20180914
  Receipt Date: 20180914
  Transmission Date: 20181010
  Serious: Yes (Other)
  Sender: FDA-Public Use
  Company Number: JP-ALLERGAN-1843978US

PATIENT
  Age: 64 Year
  Sex: Male

DRUGS (10)
  1. DIQUAS [Concomitant]
     Active Substance: DIQUAFOSOL TETRASODIUM
     Dosage: UNK
     Route: 047
  2. ACTOS [Concomitant]
     Active Substance: PIOGLITAZONE HYDROCHLORIDE
     Dosage: UNK
     Route: 048
  3. NU?LOTAN [Concomitant]
     Active Substance: LOSARTAN POTASSIUM
     Dosage: UNK
     Route: 048
  4. AVOLVE [Concomitant]
     Active Substance: DUTASTERIDE
     Dosage: UNK
     Route: 048
  5. CLOPIDOGREL [Concomitant]
     Active Substance: CLOPIDOGREL BISULFATE
     Dosage: UNK
     Route: 048
  6. SILODOSIN ? BP [Suspect]
     Active Substance: SILODOSIN
     Indication: BENIGN PROSTATIC HYPERPLASIA
     Dosage: 8 MG, UNK
     Route: 048
     Dates: start: 20180530
  7. TEARBALANCE [Concomitant]
     Active Substance: HYALURONATE SODIUM
     Dosage: UNK
     Route: 047
  8. EVIPROSTAT N [Concomitant]
     Active Substance: HERBALS
     Dosage: UNK
     Route: 048
  9. LIPITOR [Concomitant]
     Active Substance: ATORVASTATIN CALCIUM
     Dosage: UNK
     Route: 048
  10. SILODOSIN ? BP [Suspect]
     Active Substance: SILODOSIN
     Indication: DYSURIA

REACTIONS (4)
  - Visual impairment [Unknown]
  - Superficial injury of eye [Unknown]
  - Eye pain [Unknown]
  - Abnormal sensation in eye [Unknown]
